FAERS Safety Report 17492619 (Version 1)
Quarter: 2020Q1

REPORT INFORMATION
  Report Type: Report from Study
  Country: None (occurrence: US)
  Receive Date: 20200303
  Receipt Date: 20200303
  Transmission Date: 20200409
  Serious: Yes (Other)
  Sender: FDA-Public Use
  Company Number: US-ABBVIE-20P-163-3301090-00

PATIENT
  Age: 59 Year
  Sex: Female

DRUGS (1)
  1. RINVOQ [Suspect]
     Active Substance: UPADACITINIB
     Indication: RHEUMATOID ARTHRITIS
     Route: 048
     Dates: start: 20200121, end: 20200218

REACTIONS (6)
  - Postoperative wound infection [Unknown]
  - Surgery [Recovering/Resolving]
  - Night sweats [Unknown]
  - Incision site swelling [Unknown]
  - White blood cell count increased [Unknown]
  - Feeling hot [Unknown]

NARRATIVE: CASE EVENT DATE: 202002
